FAERS Safety Report 13103181 (Version 1)
Quarter: 2017Q1

REPORT INFORMATION
  Report Type: Spontaneous
  Country: US (occurrence: US)
  Receive Date: 20170110
  Receipt Date: 20170110
  Transmission Date: 20170428
  Serious: Yes (Death)
  Sender: FDA-Public Use
  Company Number: US-INSYS THERAPEUTICS, INC-INS201612-000879

PATIENT
  Age: 35 Year
  Sex: Male

DRUGS (10)
  1. VENLAFAXINE [Suspect]
     Active Substance: VENLAFAXINE HYDROCHLORIDE
  2. CAFFEINE. [Suspect]
     Active Substance: CAFFEINE
  3. NALOXONE [Suspect]
     Active Substance: NALOXONE
  4. COTININE [Suspect]
     Active Substance: COTININE
  5. TAPENTADOL [Suspect]
     Active Substance: TAPENTADOL
  6. HYDROMORPHONE [Suspect]
     Active Substance: HYDROMORPHONE
  7. DIPHENHYDRAMINE. [Suspect]
     Active Substance: DIPHENHYDRAMINE
  8. PENTACHLOROPHENOL [Suspect]
     Active Substance: PENTACHLOROPHENOL
  9. FENTANYL. [Suspect]
     Active Substance: FENTANYL
     Indication: PRODUCT USED FOR UNKNOWN INDICATION
     Route: 065
  10. HYDROCODONE [Suspect]
     Active Substance: HYDROCODONE

REACTIONS (1)
  - Toxicity to various agents [Fatal]
